FAERS Safety Report 7493246-X (Version None)
Quarter: 2011Q2

REPORT INFORMATION
  Report Type: 
  Country: None (occurrence: None)
  Receive Date: 20110520
  Receipt Date: 20110510
  Transmission Date: 20111010
  Serious: Yes (Hospitalization, Other)
  Sender: FDA-Public Use
  Company Number: FR-JNJFOC-20110506252

PATIENT
  Age: 58 Year
  Sex: Female

DRUGS (8)
  1. LEVOFLOXACIN [Suspect]
     Indication: SINUSITIS
     Route: 048
     Dates: start: 20110307, end: 20110310
  2. TRAMADOL HCL [Concomitant]
     Route: 065
  3. NOCTRAN [Concomitant]
     Route: 065
     Dates: start: 20100501
  4. ACETAMINOPHEN [Concomitant]
     Route: 065
  5. TRAMADOL HCL [Concomitant]
     Route: 065
     Dates: start: 20110101
  6. ESCITALOPRAM [Concomitant]
     Route: 065
     Dates: start: 20100501, end: 20110307
  7. PREDNISONE [Suspect]
     Indication: SINUSITIS
     Route: 048
     Dates: start: 20110307, end: 20110310
  8. CRESTOR [Concomitant]
     Route: 065
     Dates: start: 20100501

REACTIONS (8)
  - HALLUCINATION, SYNAESTHETIC [None]
  - HEADACHE [None]
  - CONFUSIONAL STATE [None]
  - HALLUCINATION, VISUAL [None]
  - MALAISE [None]
  - DISORIENTATION [None]
  - AGITATION [None]
  - ASTHENIA [None]
